FAERS Safety Report 4293632-5 (Version None)
Quarter: 2004Q1

REPORT INFORMATION
  Report Type: 
  Country: None (occurrence: None)
  Receive Date: 20040210
  Receipt Date: 20040129
  Transmission Date: 20041129
  Serious: No
  Sender: FDA-Public Use
  Company Number: 04P-062-0249263-00

PATIENT
  Age: 34 Year
  Sex: Female

DRUGS (2)
  1. ERGENYL (SODIUM VALPROATE) (SODIUM VALPROATE)  (SODIUM VALPROATE) [Suspect]
     Indication: EPILEPSY
     Dosage: 3 DOSAGE FORMS, 2 IN 1 D, PER ORAL
     Route: 048
     Dates: start: 19970901
  2. GABAPENTIN [Suspect]
     Indication: EPILEPSY
     Dosage: 2 DOSAGES FORMS, 1 IN 1 D, PER ORAL
     Route: 048
     Dates: start: 19980601

REACTIONS (3)
  - ARTHRALGIA [None]
  - BONE MARROW OEDEMA [None]
  - OSTEOCHONDROSIS [None]
